FAERS Safety Report 17613912 (Version 1)
Quarter: 2020Q2

REPORT INFORMATION
  Report Type: Spontaneous
  Country: US (occurrence: US)
  Receive Date: 20200402
  Receipt Date: 20200402
  Transmission Date: 20200713
  Serious: No
  Sender: FDA-Public Use
  Company Number: US-GLAXOSMITHKLINE-US2020AMR052231

PATIENT
  Sex: Female

DRUGS (1)
  1. ZEJULA [Suspect]
     Active Substance: NIRAPARIB
     Indication: OVARIAN CANCER
     Dosage: 300 MG,QPM
     Dates: start: 20200225

REACTIONS (4)
  - Blood pressure increased [Unknown]
  - Nausea [Unknown]
  - Carbohydrate antigen 125 increased [Unknown]
  - Constipation [Recovering/Resolving]
